FAERS Safety Report 24137660 (Version 6)
Quarter: 2025Q1

REPORT INFORMATION
  Report Type: Report from Study
  Country: CA (occurrence: CA)
  Receive Date: 20240725
  Receipt Date: 20250228
  Transmission Date: 20250409
  Serious: Yes (Hospitalization, Other)
  Sender: ALEXION PHARMACEUTICALS
  Company Number: 2024A167081

PATIENT

DRUGS (3)
  1. TEZEPELUMAB [Suspect]
     Active Substance: TEZEPELUMAB
     Indication: Asthma
  2. FLOVENT [Concomitant]
     Active Substance: FLUTICASONE PROPIONATE
  3. VENTOLIN [Concomitant]
     Active Substance: ALBUTEROL SULFATE

REACTIONS (10)
  - Intestinal obstruction [Unknown]
  - Hypoacusis [Unknown]
  - Dizziness [Unknown]
  - Eye irritation [Unknown]
  - Eye irritation [Unknown]
  - Weight decreased [Unknown]
  - Insomnia [Unknown]
  - Rash macular [Unknown]
  - Condition aggravated [Unknown]
  - Illness [Unknown]
